FAERS Safety Report 9353960 (Version 1)
Quarter: 2013Q2

REPORT INFORMATION
  Report Type: Spontaneous
  Country: JP (occurrence: JP)
  Receive Date: 20130618
  Receipt Date: 20130618
  Transmission Date: 20140414
  Serious: Yes (Other)
  Sender: FDA-Public Use
  Company Number: JP-009507513-1306JPN006485

PATIENT
  Age: 58 Year
  Sex: Male

DRUGS (5)
  1. NU-LOTAN TABLET 50 [Suspect]
     Dosage: DAILY DOSAGE UNKNOWN
     Route: 048
     Dates: start: 200202, end: 201101
  2. [THERAPY UNSPECIFIED] [Suspect]
     Dosage: DAILY DOSAGE UNKNOWN
     Route: 065
  3. [THERAPY UNSPECIFIED] [Suspect]
     Dosage: DAILY DOSAGE UNKNOWN
  4. [THERAPY UNSPECIFIED] [Suspect]
     Dosage: DAILY DOSAGE UNKNOWN
  5. [THERAPY UNSPECIFIED] [Suspect]
     Dosage: DAILY DOSAGE UNKNOWN

REACTIONS (1)
  - Rhabdomyolysis [Unknown]
